FAERS Safety Report 9090550 (Version 1)
Quarter: 2013Q1

REPORT INFORMATION
  Report Type: Spontaneous
  Country: IT (occurrence: IT)
  Receive Date: 20130201
  Receipt Date: 20130201
  Transmission Date: 20140127
  Serious: Yes (Hospitalization)
  Sender: FDA-Public Use
  Company Number: IT-TEVA-382899ISR

PATIENT
  Age: 39 Year
  Sex: Female

DRUGS (2)
  1. CARBOLITHIUM [Suspect]
     Dosage: 30 DOSAGE FORMS DAILY;
     Route: 048
     Dates: start: 20130118, end: 20130118
  2. EN [Suspect]
     Dosage: 60 GTT DAILY;
     Route: 048
     Dates: start: 20130118, end: 20130118

REACTIONS (4)
  - Hypotension [Recovered/Resolved]
  - Bradycardia [Recovered/Resolved]
  - Toxicity to various agents [Recovered/Resolved]
  - Intentional self-injury [Recovered/Resolved]
